FAERS Safety Report 5135036-9 (Version None)
Quarter: 2006Q4

REPORT INFORMATION
  Report Type: 
  Country: None (occurrence: None)
  Receive Date: 20060831
  Receipt Date: 20060727
  Transmission Date: 20070319
  Serious: No
  Sender: FDA-Public Use
  Company Number: 2006-BP-08688BP

PATIENT
  Age: 83 Year
  Sex: Female

DRUGS (4)
  1. SPIRIVA [Suspect]
     Indication: CHRONIC OBSTRUCTIVE PULMONARY DISEASE
     Dosage: 18 MCG (18 MCG,QD),IH
     Route: 055
     Dates: start: 20060724
  2. DUONEB (COMBIVENT /01261001/) [Concomitant]
  3. NEURONTIN [Concomitant]
  4. PHAZYME [Concomitant]

REACTIONS (3)
  - ANOREXIA [None]
  - FLATULENCE [None]
  - NAUSEA [None]
